FAERS Safety Report 19126669 (Version 5)
Quarter: 2021Q3

REPORT INFORMATION
  Report Type: Spontaneous
  Country: TR (occurrence: TR)
  Receive Date: 20210412
  Receipt Date: 20210915
  Transmission Date: 20211014
  Serious: Yes (Death)
  Sender: FDA-Public Use
  Company Number: TR-PFIZER INC-2021384324

PATIENT
  Age: 71 Year
  Sex: Male

DRUGS (5)
  1. GEMTUZUMAB OZOGAMICIN [Suspect]
     Active Substance: GEMTUZUMAB OZOGAMICIN
     Indication: ACUTE MYELOID LEUKAEMIA REFRACTORY
     Dosage: 3 MG/M2, CYCLIC (DL,4,7)
     Route: 042
     Dates: start: 20200928
  2. MEROPENEM. [Concomitant]
     Active Substance: MEROPENEM
     Dosage: UNK
  3. BELOC ZOK [Concomitant]
     Active Substance: METOPROLOL SUCCINATE
     Dosage: UNK
  4. AMIKACIN. [Concomitant]
     Active Substance: AMIKACIN
     Dosage: UNK
  5. AMBISOME [Concomitant]
     Active Substance: AMPHOTERICIN B
     Dosage: UNK

REACTIONS (3)
  - Klebsiella sepsis [Fatal]
  - Febrile neutropenia [Fatal]
  - Septic shock [Fatal]
